FAERS Safety Report 12412983 (Version 3)
Quarter: 2016Q3

REPORT INFORMATION
  Report Type: Spontaneous
  Country: AT (occurrence: AT)
  Receive Date: 20160527
  Receipt Date: 20160810
  Transmission Date: 20161109
  Serious: Yes (Hospitalization, Other)
  Sender: FDA-Public Use
  Company Number: AT-GILEAD-2016-0211459

PATIENT
  Age: 55 Year
  Sex: Female
  Weight: 104 kg

DRUGS (3)
  1. LIDAPRIM                           /00525601/ [Suspect]
     Active Substance: SULFAMETROLE\TRIMETHOPRIM
     Indication: PNEUMOCYSTIS JIROVECII PNEUMONIA
     Route: 065
  2. ZYDELIG [Suspect]
     Active Substance: IDELALISIB
     Indication: B-CELL LYMPHOMA
     Dosage: 150 MG, UNK
     Route: 065
     Dates: start: 20160323, end: 20160428
  3. ZYDELIG [Suspect]
     Active Substance: IDELALISIB
     Dosage: 100 MG, UNK
     Route: 048

REACTIONS (13)
  - Rash generalised [Recovered/Resolved with Sequelae]
  - Staphylococcal bacteraemia [Unknown]
  - Face oedema [Unknown]
  - Pancytopenia [Unknown]
  - Electrolyte imbalance [Unknown]
  - Pyrexia [Recovered/Resolved]
  - Vomiting [Unknown]
  - Renal failure [Unknown]
  - Bacterial disease carrier [Unknown]
  - Growing pains [Unknown]
  - Dehydration [Unknown]
  - C-reactive protein increased [Recovering/Resolving]
  - Diarrhoea [Not Recovered/Not Resolved]

NARRATIVE: CASE EVENT DATE: 20160414
